FAERS Safety Report 8830007 (Version 1)
Quarter: 2012Q4

REPORT INFORMATION
  Report Type: 
  Country: US (occurrence: US)
  Receive Date: 20121008
  Receipt Date: 20121008
  Transmission Date: 20130627
  Serious: Yes (Other)
  Sender: FDA-Public Use
  Company Number: US-ASTRAZENECA-2012SE75644

PATIENT
  Sex: Female

DRUGS (2)
  1. TOPROL XL [Suspect]
     Route: 048
  2. TOPROL XL [Suspect]
     Route: 048

REACTIONS (4)
  - Supraventricular tachycardia [Unknown]
  - Drug prescribing error [Unknown]
  - Adverse event [Unknown]
  - Drug dose omission [Unknown]
